FAERS Safety Report 8717105 (Version 2)
Quarter: 2013Q4

REPORT INFORMATION
  Report Type: Report from Study
  Country: US (occurrence: US)
  Receive Date: 20120810
  Receipt Date: 20131101
  Transmission Date: 20140711
  Serious: No
  Sender: FDA-Public Use
  Company Number: US-009507513-1207USA007103

PATIENT
  Age: 56 Year
  Sex: Male
  Weight: 79.37 kg

DRUGS (5)
  1. PEGINTRON [Suspect]
     Dosage: 120 MCG/0.5 ML, UNK
     Route: 058
     Dates: start: 20120513
  2. RIBASPHERE [Suspect]
     Dosage: UNK
     Dates: start: 20120513
  3. LANTUS [Concomitant]
  4. METFORMIN [Concomitant]
     Dosage: EXTENDED RELEASE TABLETS
  5. IBUPROFEN [Concomitant]
     Dosage: 200 MG, UNK

REACTIONS (3)
  - Lethargy [Unknown]
  - Influenza like illness [Unknown]
  - Fatigue [Not Recovered/Not Resolved]
